FAERS Safety Report 10179597 (Version 1)
Quarter: 2014Q2

REPORT INFORMATION
  Report Type: Other
  Country: CA (occurrence: CA)
  Receive Date: 20140519
  Receipt Date: 20140519
  Transmission Date: 20141212
  Serious: Yes (Other)
  Sender: FDA-Public Use
  Company Number: CA-TARO PHARMACEUTICALS U.S.A., INC-2014SUN01084

PATIENT
  Age: 40 Year
  Sex: Female

DRUGS (6)
  1. TARO-WARFARIN TABLETS 3MG [Suspect]
     Indication: PRODUCT USED FOR UNKNOWN INDICATION
     Dosage: 3 MG, QD
     Route: 065
  2. BOSENTAN [Concomitant]
  3. FERROUS FUMARATE [Concomitant]
  4. FUROSEMIDE [Concomitant]
  5. METOPROLOL [Concomitant]
  6. SYMBICORT TURBUHALER [Concomitant]

REACTIONS (3)
  - International normalised ratio decreased [Unknown]
  - Drug ineffective [Unknown]
  - Product substitution issue [Unknown]
